FAERS Safety Report 5189885-1 (Version None)
Quarter: 2006Q4

REPORT INFORMATION
  Report Type: 
  Country: None (occurrence: None)
  Receive Date: 20061218
  Receipt Date: 20061208
  Transmission Date: 20070319
  Serious: Yes (Other)
  Sender: FDA-Public Use
  Company Number: 2006117139

PATIENT
  Sex: Female

DRUGS (5)
  1. XALATAN [Suspect]
     Indication: CATARACT
     Dosage: TOPICAL
     Route: 061
  2. XALATAN [Suspect]
     Indication: GLAUCOMA
     Dosage: TOPICAL
     Route: 061
  3. CARTEOLOL HYDROCHLORIDE [Suspect]
     Indication: CATARACT
  4. CARTEOLOL HYDROCHLORIDE [Suspect]
     Indication: GLAUCOMA
  5. IRBESARTAN [Concomitant]

REACTIONS (3)
  - DRUG EFFECT DECREASED [None]
  - OPTIC NERVE INJURY [None]
  - VISUAL ACUITY REDUCED [None]
